FAERS Safety Report 9404583 (Version 1)
Quarter: 2013Q3

REPORT INFORMATION
  Report Type: Spontaneous
  Country: US (occurrence: None)
  Receive Date: 20130716
  Receipt Date: 20130716
  Transmission Date: 20140515
  Serious: Yes (Hospitalization)
  Sender: FDA-Public Use
  Company Number: None

PATIENT
  Age: 56 Year
  Sex: Male
  Weight: 84.3 kg

DRUGS (2)
  1. MORPHINE [Suspect]
     Indication: PAIN
     Route: 048
     Dates: start: 20130418, end: 20130428
  2. ACETAMINOPHEN/OXYCODONE [Suspect]
     Indication: PAIN
     Route: 048
     Dates: start: 20130418, end: 20130428

REACTIONS (7)
  - Abdominal pain [None]
  - Chest pain [None]
  - Nausea [None]
  - Vomiting [None]
  - Ileus [None]
  - Aneurysm [None]
  - Constipation [None]
